FAERS Safety Report 5400184-2 (Version None)
Quarter: 2007Q3

REPORT INFORMATION
  Report Type: 
  Country: None (occurrence: None)
  Receive Date: 20070725
  Receipt Date: 20070713
  Transmission Date: 20080115
  Serious: Yes (Life-Threatening, Hospitalization)
  Sender: FDA-Public Use
  Company Number: GXKR2007IT06053

PATIENT
  Age: 19 Year
  Sex: Female

DRUGS (3)
  1. NIMESULIDE (NGX) (NIMESULIDE) UNKNOWN [Suspect]
     Indication: HEADACHE
  2. PARACETAMOL (NGX) (PARACETAMOL) UNKNOWN [Suspect]
     Indication: HEADACHE
  3. ASPIRIN [Suspect]
     Indication: HEADACHE

REACTIONS (3)
  - PSEUDOMONAS INFECTION [None]
  - STAPHYLOCOCCAL INFECTION [None]
  - TOXIC EPIDERMAL NECROLYSIS [None]
